FAERS Safety Report 22273057 (Version 1)
Quarter: 2023Q2

REPORT INFORMATION
  Report Type: Spontaneous
  Country: US (occurrence: None)
  Receive Date: 20230502
  Receipt Date: 20230502
  Transmission Date: 20230721
  Serious: Yes (Life-Threatening, Other)
  Sender: FDA-Public Use
  Company Number: 2023A099374

PATIENT

DRUGS (4)
  1. FASENRA [Suspect]
     Active Substance: BENRALIZUMAB
     Route: 058
  2. EXCEDRIN [Suspect]
     Active Substance: ACETAMINOPHEN\ASPIRIN\CAFFEINE
  3. ALBUTEROL [Suspect]
     Active Substance: ALBUTEROL
  4. ADVIL [Interacting]
     Active Substance: IBUPROFEN

REACTIONS (26)
  - Cardiac disorder [Unknown]
  - Ventricular extrasystoles [Unknown]
  - Blood pressure increased [Unknown]
  - Lung disorder [Unknown]
  - Generalised oedema [Unknown]
  - Heart rate increased [Unknown]
  - Post-acute COVID-19 syndrome [Unknown]
  - Headache [Not Recovered/Not Resolved]
  - Inappropriate schedule of product administration [Unknown]
  - Drug intolerance [Unknown]
  - Feeling abnormal [Unknown]
  - Visual impairment [Unknown]
  - Abdominal distension [Not Recovered/Not Resolved]
  - Injection site bruising [Not Recovered/Not Resolved]
  - Oropharyngeal pain [Unknown]
  - Quality of life decreased [Unknown]
  - Drug interaction [Unknown]
  - Asthma [Unknown]
  - Illness [Unknown]
  - Diabetes mellitus [Unknown]
  - Peripheral swelling [Not Recovered/Not Resolved]
  - Contusion [Not Recovered/Not Resolved]
  - Hypophagia [Unknown]
  - Hypersensitivity [Unknown]
  - Mycotic allergy [Unknown]
  - Seasonal allergy [Unknown]
